FAERS Safety Report 7368620-2 (Version None)
Quarter: 2011Q1

REPORT INFORMATION
  Report Type: 
  Country: None (occurrence: None)
  Receive Date: 20110308
  Receipt Date: 20110217
  Transmission Date: 20110831
  Serious: Yes (Hospitalization)
  Sender: FDA-Public Use
  Company Number: 2011SP007532

PATIENT
  Age: 20 Year
  Sex: Female
  Weight: 50 kg

DRUGS (6)
  1. TEMOZOLOMIDE [Suspect]
     Indication: GLIOBLASTOMA MULTIFORME
     Dosage: 100 MG;PO ; 240 MG
     Route: 048
     Dates: start: 20100223, end: 20100607
  2. TEMOZOLOMIDE [Suspect]
     Indication: GLIOBLASTOMA MULTIFORME
     Dosage: 100 MG;PO ; 240 MG
     Route: 048
     Dates: start: 20100101
  3. DEPAKENE [Concomitant]
  4. GASMOTIN [Concomitant]
  5. GLIATILIN [Concomitant]
  6. ZOFRAN [Concomitant]

REACTIONS (1)
  - METASTASES TO SPINE [None]
